FAERS Safety Report 5204627-9 (Version None)
Quarter: 2007Q1

REPORT INFORMATION
  Report Type: 
  Country: None (occurrence: None)
  Receive Date: 20070110
  Receipt Date: 20060614
  Transmission Date: 20070707
  Serious: No
  Sender: FDA-Public Use
  Company Number: US-BRISTOL-MYERS SQUIBB COMPANY-13390752

PATIENT
  Age: 45 Year
  Sex: Female

DRUGS (3)
  1. ABILIFY [Suspect]
     Indication: BIPOLAR DISORDER
     Dosage: INTERRUPTED IN 2005/2006 DURING PREGNANCY, RESTARTED IN MARCH 2006
     Route: 048
     Dates: start: 20030101
  2. ABILIFY [Suspect]
     Indication: PSYCHOTIC DISORDER
     Dosage: INTERRUPTED IN 2005/2006 DURING PREGNANCY, RESTARTED IN MARCH 2006
     Route: 048
     Dates: start: 20030101
  3. VISTARIL [Concomitant]

REACTIONS (1)
  - DRUG INEFFECTIVE [None]
